FAERS Safety Report 21960834 (Version 1)
Quarter: 2023Q1

REPORT INFORMATION
  Report Type: Spontaneous
  Country: DE (occurrence: DE)
  Receive Date: 20230207
  Receipt Date: 20230207
  Transmission Date: 20230418
  Serious: Yes (Hospitalization)
  Sender: FDA-Public Use
  Company Number: DE-drreddys-LIT/GER/23/0160751

PATIENT
  Age: 8 Year

DRUGS (2)
  1. VALPROIC ACID [Interacting]
     Active Substance: VALPROIC ACID
     Indication: Antipsychotic therapy
  2. ZUCLOPENTHIXOL [Interacting]
     Active Substance: ZUCLOPENTHIXOL
     Indication: Antipsychotic therapy

REACTIONS (1)
  - Salivary hypersecretion [Unknown]
